FAERS Safety Report 8842142 (Version 2)
Quarter: 2012Q4

REPORT INFORMATION
  Report Type: 
  Country: UG (occurrence: UG)
  Receive Date: 20121016
  Receipt Date: 20121128
  Transmission Date: 20130627
  Serious: Yes (Life-Threatening, Hospitalization)
  Sender: FDA-Public Use
  Company Number: PHHY2012UG091116

PATIENT
  Age: 26 Year
  Sex: Female

DRUGS (2)
  1. COARTEM [Suspect]
     Indication: MALARIA
     Dosage: 4 by day
     Route: 048
     Dates: start: 20121007, end: 20121009
  2. PARACETAMOL [Concomitant]

REACTIONS (4)
  - Abortion incomplete [Recovering/Resolving]
  - Abdominal pain [Recovering/Resolving]
  - Vaginal haemorrhage [Recovering/Resolving]
  - Exposure during pregnancy [Recovered/Resolved]
